FAERS Safety Report 16127260 (Version 5)
Quarter: 2020Q1

REPORT INFORMATION
  Report Type: Report from Study
  Country: US (occurrence: US)
  Receive Date: 20190328
  Receipt Date: 20200330
  Transmission Date: 20200409
  Serious: Yes (Other)
  Sender: FDA-Public Use
  Company Number: PHEH2019US013456

PATIENT
  Age: 12 Year
  Sex: Male
  Weight: 50.7 kg

DRUGS (2)
  1. PROMACTA [Suspect]
     Active Substance: ELTROMBOPAG OLAMINE
     Dosage: 1 DF, QOD
     Route: 048
  2. PROMACTA [Suspect]
     Active Substance: ELTROMBOPAG OLAMINE
     Indication: IMMUNE THROMBOCYTOPENIC PURPURA
     Dosage: 50 MG
     Route: 048
     Dates: start: 20190218

REACTIONS (12)
  - Headache [Recovered/Resolved]
  - Platelet count decreased [Recovering/Resolving]
  - Vision blurred [Unknown]
  - Rash [Recovered/Resolved]
  - Platelet count increased [Unknown]
  - Visual impairment [Recovered/Resolved]
  - Alopecia [Recovering/Resolving]
  - Abdominal pain [Recovered/Resolved]
  - Pain [Recovered/Resolved]
  - Haemorrhage [Unknown]
  - Dizziness [Recovered/Resolved]
  - Headache [Recovered/Resolved]

NARRATIVE: CASE EVENT DATE: 20190429
